FAERS Safety Report 8848661 (Version 2)
Quarter: 2014Q2

REPORT INFORMATION
  Report Type: Spontaneous
  Country: US (occurrence: US)
  Receive Date: 20121018
  Receipt Date: 20131018
  Transmission Date: 20141212
  Serious: Yes (Hospitalization, Other)
  Sender: FDA-Public Use
  Company Number: US-PFIZER INC-2012253214

PATIENT
  Age: 12 Month
  Sex: Male
  Weight: 7 kg

DRUGS (2)
  1. PHENYTOIN [Suspect]
     Indication: MYOCLONIC EPILEPSY
     Dosage: 15 MG, 3X/DAY
  2. PHENOBARBITAL [Suspect]
     Indication: MYOCLONIC EPILEPSY
     Dosage: 15 MG, 2X/DAY

REACTIONS (7)
  - Feeding disorder [Unknown]
  - Unresponsive to stimuli [Recovering/Resolving]
  - Myoclonic epilepsy [Recovered/Resolved]
  - Lethargy [Unknown]
  - Anticonvulsant drug level increased [Recovered/Resolved]
  - Hypotonia [Recovering/Resolving]
  - Asthenia [Recovering/Resolving]
